FAERS Safety Report 8574499-3 (Version None)
Quarter: 2012Q3

REPORT INFORMATION
  Report Type: 
  Country: None (occurrence: None)
  Receive Date: 20120806
  Receipt Date: 20120119
  Transmission Date: 20120928
  Serious: No
  Sender: FDA-Public Use
  Company Number: US-ABBOTT-12P-163-0895752-00

PATIENT
  Sex: Female

DRUGS (2)
  1. DEPAKOTE ER [Suspect]
     Indication: MIGRAINE PROPHYLAXIS
     Dates: start: 19970101
  2. DEPAKOTE [Suspect]
     Indication: MIGRAINE PROPHYLAXIS

REACTIONS (2)
  - DYSPHAGIA [None]
  - HEADACHE [None]
